FAERS Safety Report 14819179 (Version 2)
Quarter: 2018Q2

REPORT INFORMATION
  Report Type: Spontaneous
  Country: DK (occurrence: DK)
  Receive Date: 20180427
  Receipt Date: 20180612
  Transmission Date: 20180711
  Serious: Yes (Hospitalization)
  Sender: FDA-Public Use
  Company Number: DK-TEVA-2018-DK-887155

PATIENT
  Age: 76 Year
  Sex: Female

DRUGS (11)
  1. HYDROXYCARBAMIDE [Concomitant]
     Active Substance: HYDROXYUREA
     Indication: LEUKAEMIA
     Dosage: STRENGTH: 500 MG. DOSAGE: 1 CAPSULE, MONDAY, WEDNESDAY AND FRIDAY.
     Route: 048
     Dates: start: 20170421, end: 20180130
  2. PREDNISOLONE. [Concomitant]
     Active Substance: PREDNISOLONE
     Dates: start: 20171026
  3. PREDNISOLONE. [Concomitant]
     Active Substance: PREDNISOLONE
     Indication: ADRENOCORTICAL STEROID THERAPY
     Dosage: STYRKE: 25 MG.
     Route: 048
     Dates: start: 20161104, end: 20170601
  4. ALENDRONATE [Suspect]
     Active Substance: ALENDRONATE SODIUM
     Indication: OSTEOPOROSIS
     Route: 048
  5. PARACETAMOL [Concomitant]
     Active Substance: ACETAMINOPHEN
     Indication: PAIN
     Dosage: 4000 MILLIGRAM DAILY; STYRKE: 500 MG.
     Route: 048
     Dates: start: 20171017, end: 20171019
  6. ACETYLSALICYLIC ACID [Concomitant]
     Active Substance: ASPIRIN
     Indication: THROMBOSIS PROPHYLAXIS
     Dosage: STYRKE: 75 MG.
     Route: 048
     Dates: start: 20160125
  7. SIMVASTATIN. [Concomitant]
     Active Substance: SIMVASTATIN
     Indication: THROMBOSIS PROPHYLAXIS
     Dosage: STYRKE: 40 MG.
     Route: 048
     Dates: start: 20160125
  8. TRAMADOL. [Concomitant]
     Active Substance: TRAMADOL
     Indication: PAIN
     Dosage: STRENGTH: 50 MG. DOSAGE: 1-3 TABLETS AS NEEDED.
     Route: 048
     Dates: start: 20160822
  9. WARFARIN [Concomitant]
     Active Substance: WARFARIN
     Indication: THROMBOSIS PROPHYLAXIS
     Dosage: STYRKE: 2.5 MG.
     Route: 048
     Dates: start: 20161021, end: 20180222
  10. PROLIA [Suspect]
     Active Substance: DENOSUMAB
     Indication: OSTEOPOROSIS
     Dosage: STYRKE: 60 MG/ML.
     Route: 058
     Dates: start: 2013, end: 20171017
  11. ZOPICLONE [Concomitant]
     Active Substance: ZOPICLONE
     Indication: INSOMNIA
     Dosage: STYRKE: 7,5 MG.
     Route: 048
     Dates: start: 20160414

REACTIONS (4)
  - Sequestrectomy [Recovered/Resolved]
  - Osteonecrosis of jaw [Recovered/Resolved]
  - Abscess jaw [Unknown]
  - Jaw operation [Recovered/Resolved]

NARRATIVE: CASE EVENT DATE: 20171019
